FAERS Safety Report 7427211-5 (Version None)
Quarter: 2011Q2

REPORT INFORMATION
  Report Type: 
  Country: None (occurrence: None)
  Receive Date: 20110420
  Receipt Date: 20110412
  Transmission Date: 20111010
  Serious: Yes (Hospitalization)
  Sender: FDA-Public Use
  Company Number: US-PFIZER INC-2011059392

PATIENT
  Sex: Male
  Weight: 122 kg

DRUGS (6)
  1. LOTREL [Concomitant]
     Dosage: UNK
     Dates: start: 20100928
  2. ACETYLSALICYLIC ACID [Concomitant]
     Indication: PROPHYLAXIS
     Dosage: UNK
     Dates: start: 20110221
  3. AZITHROMYCIN [Suspect]
     Indication: VIRAL INFECTION
     Dosage: 250 DOSE PAK
     Route: 048
     Dates: end: 20110101
  4. PRILOSEC [Concomitant]
     Dosage: UNK
  5. NAPROXEN [Concomitant]
     Dosage: PRN
     Dates: start: 20100928
  6. OMEPRAZOLE [Concomitant]
     Dosage: UNK

REACTIONS (1)
  - HYPONATRAEMIA [None]
